FAERS Safety Report 8045148-8 (Version None)
Quarter: 2012Q1

REPORT INFORMATION
  Report Type: 
  Country: None (occurrence: None)
  Receive Date: 20120113
  Receipt Date: 20111003
  Transmission Date: 20120608
  Serious: Yes (Hospitalization)
  Sender: FDA-Public Use
  Company Number: US-ASTRAZENECA-2011SE57607

PATIENT
  Age: 38 Year
  Sex: Female

DRUGS (15)
  1. LIBRAX [Concomitant]
     Indication: GASTRIC DISORDER
  2. SEROQUEL XR [Suspect]
     Indication: BIPOLAR DISORDER
     Route: 048
  3. TRICOR [Concomitant]
     Indication: BLOOD TRIGLYCERIDES ABNORMAL
     Dosage: 145 DAILY
  4. ATARAX [Concomitant]
     Indication: ANXIETY
  5. CYMBALTA [Concomitant]
     Indication: DEPRESSION
  6. TRAZODONE HCL [Concomitant]
     Indication: ANTIDEPRESSANT THERAPY
  7. LOVAZAR [Concomitant]
     Indication: BLOOD CHOLESTEROL ABNORMAL
  8. SUDAFED 12 HOUR [Concomitant]
  9. SEROQUEL XR [Suspect]
     Indication: DEPRESSION
     Route: 048
  10. VALIUM [Concomitant]
     Indication: ANXIETY
  11. SEROQUEL XR [Suspect]
     Indication: ANXIETY
     Route: 048
  12. PRILOSEC [Suspect]
     Indication: GASTROOESOPHAGEAL REFLUX DISEASE
     Route: 048
  13. PRIMIDONE [Concomitant]
     Indication: TREMOR
  14. ZOCOR [Concomitant]
     Indication: BLOOD CHOLESTEROL ABNORMAL
  15. ROBITUSSIN CF [Concomitant]

REACTIONS (6)
  - NASOPHARYNGITIS [None]
  - COUGH [None]
  - TACHYPHRENIA [None]
  - PANCREATITIS [None]
  - ANXIETY [None]
  - DRUG INEFFECTIVE FOR UNAPPROVED INDICATION [None]
